FAERS Safety Report 5645246-X (Version None)
Quarter: 2008Q1

REPORT INFORMATION
  Report Type: 
  Country: None (occurrence: None)
  Receive Date: 20080229
  Receipt Date: 20080227
  Transmission Date: 20080703
  Serious: Yes (Death, Life-Threatening)
  Sender: FDA-Public Use
  Company Number: DE-ASTRAZENECA-2008PK00414

PATIENT
  Age: 21801 Day
  Sex: Male

DRUGS (25)
  1. NEXIUM [Suspect]
     Route: 048
  2. BELOC-ZOK FORTE [Suspect]
     Dates: start: 20041107
  3. TAVEGIL [Suspect]
     Dates: start: 20041215
  4. MARCUMAR [Suspect]
     Dates: start: 20041125
  5. CIPRO [Suspect]
  6. LASIX [Suspect]
     Route: 042
  7. DECORTIN [Suspect]
  8. CLEXANE [Suspect]
     Route: 058
  9. CLEXANE [Suspect]
     Route: 058
  10. CLONT [Suspect]
  11. SODIUM CHLORID SOLUTION [Concomitant]
     Dosage: 0.9% , 250ML, 500ML, 1000ML
     Dates: start: 20041125
  12. DECORTIN H [Concomitant]
  13. DECORTIN H [Concomitant]
  14. TAVOR [Concomitant]
  15. BENURON [Concomitant]
  16. IMODIUM [Concomitant]
  17. CA2+ INFUSION SOLUTION [Concomitant]
  18. SODIUMBICARBONATE INFUSION SOLUTION [Concomitant]
  19. ALBUMIN (HUMAN) [Concomitant]
     Dosage: 5% 250ML
  20. RED BLOOD CELLS [Concomitant]
  21. KONAKION [Concomitant]
  22. RINGERSOLUTION [Concomitant]
  23. POTASSIUM CHLORIDE [Concomitant]
  24. KALIUMBRAUSE [Concomitant]
  25. PASPERTIN [Concomitant]

REACTIONS (2)
  - STEVENS-JOHNSON SYNDROME [None]
  - TOXIC EPIDERMAL NECROLYSIS [None]
